FAERS Safety Report 18146371 (Version 6)
Quarter: 2020Q4

REPORT INFORMATION
  Report Type: Spontaneous
  Country: FR (occurrence: FR)
  Receive Date: 20200813
  Receipt Date: 20201217
  Transmission Date: 20210113
  Serious: Yes (Other)
  Sender: FDA-Public Use
  Company Number: NVSC2020FR220882

PATIENT
  Age: 16 Year
  Sex: Female
  Weight: 45 kg

DRUGS (4)
  1. ADALIMUMAB [Concomitant]
     Active Substance: ADALIMUMAB
     Indication: CROHN^S DISEASE
     Dosage: UNK
     Route: 058
  2. INFLIXIMAB [Suspect]
     Active Substance: INFLIXIMAB
     Indication: CROHN^S DISEASE
     Dosage: UNK
     Route: 065
  3. 6-MERCAPTOPURINE MONOHYDRATE [Suspect]
     Active Substance: MERCAPTOPURINE
     Indication: CROHN^S DISEASE
     Dosage: UNK
     Route: 065
  4. IMATINIB. [Suspect]
     Active Substance: IMATINIB MESYLATE
     Indication: CROHN^S DISEASE
     Dosage: 400 MG, QD
     Route: 048

REACTIONS (7)
  - Drug ineffective [Unknown]
  - Product use in unapproved indication [Unknown]
  - Crohn^s disease [Unknown]
  - Disease recurrence [Unknown]
  - Off label use [Unknown]
  - Therapeutic response unexpected [Unknown]
  - Intentional product misuse [Unknown]
